FAERS Safety Report 10934175 (Version 1)
Quarter: 2015Q1

REPORT INFORMATION
  Report Type: Spontaneous
  Country: US (occurrence: US)
  Receive Date: 20150320
  Receipt Date: 20150320
  Transmission Date: 20150721
  Serious: No
  Sender: FDA-Public Use
  Company Number: US-ASTRAZENECA-2015SE23495

PATIENT
  Age: 56 Year
  Sex: Female
  Weight: 74.4 kg

DRUGS (3)
  1. CRESTOR [Suspect]
     Active Substance: ROSUVASTATIN CALCIUM
     Indication: BLOOD CHOLESTEROL INCREASED
     Route: 048
     Dates: start: 201410, end: 2015
  2. ALIVE MULTIVITAMIN [Concomitant]
     Indication: ASTHENIA
     Route: 048
     Dates: start: 2010
  3. CRESTOR [Suspect]
     Active Substance: ROSUVASTATIN CALCIUM
     Indication: BLOOD CHOLESTEROL INCREASED
     Route: 048

REACTIONS (6)
  - Disability [Unknown]
  - Pain in extremity [Recovering/Resolving]
  - Intentional product misuse [Unknown]
  - Palpitations [Unknown]
  - Arthropathy [Unknown]
  - Myalgia [Unknown]

NARRATIVE: CASE EVENT DATE: 2014
